FAERS Safety Report 7573362 (Version 6)
Quarter: 2013Q2

REPORT INFORMATION
  Report Type: Spontaneous
  Country: US (occurrence: US)
  Receive Date: 20100903
  Receipt Date: 20130618
  Transmission Date: 20140414
  Serious: Yes (Other)
  Sender: FDA-Public Use
  Company Number: US-ROCHE-706942

PATIENT
  Age: 15 Year
  Sex: Male
  Weight: 74.8 kg

DRUGS (7)
  1. ACCUTANE [Suspect]
     Indication: ACNE
     Route: 048
     Dates: start: 199912, end: 200003
  2. ACCUTANE [Suspect]
     Route: 048
     Dates: start: 20011217, end: 20020116
  3. ACCUTANE [Suspect]
     Route: 048
  4. CLARAVIS [Suspect]
     Indication: ACNE
     Route: 048
     Dates: start: 200310, end: 200405
  5. TYLENOL [Concomitant]
  6. ADVIL [Concomitant]
  7. PAXIL [Concomitant]
     Indication: DEPRESSION

REACTIONS (12)
  - Inflammatory bowel disease [Unknown]
  - Colitis ulcerative [Unknown]
  - Colitis [Unknown]
  - Panic attack [Unknown]
  - Depression [Unknown]
  - Paronychia [Unknown]
  - Hepatic enzyme increased [Recovered/Resolved]
  - Lymphocyte count increased [Recovered/Resolved]
  - Infectious mononucleosis [Unknown]
  - Upper respiratory tract infection [Unknown]
  - Sinusitis [Unknown]
  - Dry skin [Unknown]
